FAERS Safety Report 10654761 (Version 1)
Quarter: 2014Q4

REPORT INFORMATION
  Report Type: Spontaneous
  Country: US (occurrence: US)
  Receive Date: 20141216
  Receipt Date: 20141216
  Transmission Date: 20150529
  Serious: No
  Sender: FDA-Public Use
  Company Number: US-PFIZER INC-2014341603

PATIENT
  Age: 82 Year
  Sex: Female
  Weight: 64 kg

DRUGS (2)
  1. LYRICA [Suspect]
     Active Substance: PREGABALIN
     Indication: BACK PAIN
     Dosage: 50MG ONCE IN THE MORNING AND 100MG AT NIGHT
     Dates: start: 20141208
  2. LYRICA [Suspect]
     Active Substance: PREGABALIN
     Indication: PAIN IN EXTREMITY
     Dosage: 25 MG, 2X/DAY (ONCE AT NIGHT, ONCE IN THE MORNING)
     Dates: start: 201411

REACTIONS (2)
  - Drug ineffective [Unknown]
  - Body height decreased [Unknown]
